FAERS Safety Report 5916956-1 (Version None)
Quarter: 2008Q4

REPORT INFORMATION
  Report Type: 
  Country: None (occurrence: None)
  Receive Date: 20081013
  Receipt Date: 20081008
  Transmission Date: 20090506
  Serious: Yes (Hospitalization, Other)
  Sender: FDA-Public Use
  Company Number: US-ASTRAZENECA-2008UW21917

PATIENT
  Age: 649 Month
  Sex: Female

DRUGS (7)
  1. SEROQUEL [Suspect]
     Indication: BIPOLAR DISORDER
     Route: 048
     Dates: end: 20080421
  2. SEROQUEL [Interacting]
     Indication: ANXIETY
     Route: 048
     Dates: end: 20080421
  3. SEROQUEL [Interacting]
     Indication: PSYCHOTIC DISORDER
     Route: 048
     Dates: end: 20080421
  4. CHANTIX [Interacting]
     Indication: SMOKING CESSATION THERAPY
     Route: 048
     Dates: start: 20080320, end: 20080421
  5. TOPAMAX [Concomitant]
  6. EFFEXOR XR [Concomitant]
  7. INVEGA [Concomitant]

REACTIONS (4)
  - DEPRESSION [None]
  - DRUG INTERACTION [None]
  - HALLUCINATION [None]
  - SUICIDAL IDEATION [None]
